FAERS Safety Report 16823232 (Version 1)
Quarter: 2019Q3

REPORT INFORMATION
  Report Type: Spontaneous
  Country: GB (occurrence: GB)
  Receive Date: 20190918
  Receipt Date: 20190918
  Transmission Date: 20191005
  Serious: Yes (Disabling, Other)
  Sender: FDA-Public Use
  Company Number: GB-MYLANLABS-2019M1086166

PATIENT
  Age: 58 Year
  Sex: Female
  Weight: 60.77 kg

DRUGS (4)
  1. CODEINE [Concomitant]
     Active Substance: CODEINE
     Dosage: UNK
  2. COCODAMOL [Concomitant]
     Active Substance: ACETAMINOPHEN\CODEINE PHOSPHATE
     Dosage: UNK
  3. LETROZOLE. [Suspect]
     Active Substance: LETROZOLE
     Indication: PRODUCT USED FOR UNKNOWN INDICATION
     Dosage: UNK
  4. PARACETAMOL [Concomitant]
     Active Substance: ACETAMINOPHEN
     Dosage: UNK

REACTIONS (6)
  - Tooth injury [Recovered/Resolved with Sequelae]
  - Pain in extremity [Recovered/Resolved with Sequelae]
  - Rotator cuff syndrome [Recovered/Resolved with Sequelae]
  - Vaginal haemorrhage [Recovered/Resolved with Sequelae]
  - Arthritis [Recovered/Resolved with Sequelae]
  - Bone pain [Recovered/Resolved with Sequelae]

NARRATIVE: CASE EVENT DATE: 20161029
